FAERS Safety Report 8125704-9 (Version None)
Quarter: 2012Q1

REPORT INFORMATION
  Report Type: 
  Country: None (occurrence: None)
  Receive Date: 20120209
  Receipt Date: 20120208
  Transmission Date: 20120608
  Serious: Yes (Other)
  Sender: FDA-Public Use
  Company Number: US-PFIZER INC-2012034893

PATIENT
  Sex: Female
  Weight: 63.492 kg

DRUGS (2)
  1. XANAX [Concomitant]
     Dosage: UNK
  2. ZOLOFT [Suspect]
     Indication: DEPRESSION
     Dosage: 50 MG, UNK
     Dates: start: 20120104

REACTIONS (1)
  - DRUG SCREEN FALSE POSITIVE [None]
